FAERS Safety Report 14568057 (Version 3)
Quarter: 2018Q2

REPORT INFORMATION
  Report Type: Spontaneous
  Country: CA (occurrence: CA)
  Receive Date: 20180223
  Receipt Date: 20180601
  Transmission Date: 20180711
  Serious: Yes (Other)
  Sender: FDA-Public Use
  Company Number: CA-PFIZER INC-2018072159

PATIENT
  Age: 55 Year
  Sex: Female

DRUGS (1)
  1. XELJANZ [Suspect]
     Active Substance: TOFACITINIB CITRATE
     Indication: RHEUMATOID ARTHRITIS
     Dosage: 5 MG, 2X/DAY
     Route: 048
     Dates: start: 20180203, end: 20180213

REACTIONS (9)
  - Drug ineffective [Unknown]
  - Weight increased [Unknown]
  - Loss of consciousness [Unknown]
  - Night sweats [Unknown]
  - Abdominal pain [Unknown]
  - Sinus disorder [Unknown]
  - Dyspnoea [Not Recovered/Not Resolved]
  - Peripheral swelling [Unknown]
  - Pain [Not Recovered/Not Resolved]
